FAERS Safety Report 19432570 (Version 4)
Quarter: 2022Q2

REPORT INFORMATION
  Report Type: Spontaneous
  Country: US (occurrence: US)
  Receive Date: 20210618
  Receipt Date: 20220421
  Transmission Date: 20220720
  Serious: Yes (Other)
  Sender: FDA-Public Use
  Company Number: US-BEH-2021133078

PATIENT
  Age: 23 Year
  Sex: Female

DRUGS (3)
  1. HIZENTRA [Suspect]
     Active Substance: HUMAN IMMUNOGLOBULIN G
     Indication: Hypogammaglobulinaemia
     Dosage: 10 GRAM, QW
     Route: 058
     Dates: start: 20210602
  2. HIZENTRA [Suspect]
     Active Substance: HUMAN IMMUNOGLOBULIN G
     Indication: Selective IgG subclass deficiency
     Dosage: 10 GRAM, QW
     Route: 048
     Dates: start: 20210719
  3. HIZENTRA [Suspect]
     Active Substance: HUMAN IMMUNOGLOBULIN G
     Dosage: 10 GRAM, QW
     Route: 058
     Dates: start: 202105

REACTIONS (15)
  - Headache [Unknown]
  - Photophobia [Unknown]
  - Respiratory tract infection [Unknown]
  - Respiratory tract congestion [Unknown]
  - Oropharyngeal pain [Unknown]
  - Respiratory tract congestion [Unknown]
  - Headache [Unknown]
  - Fatigue [Unknown]
  - No adverse event [Unknown]
  - Off label use [Unknown]
  - Infusion site swelling [Recovered/Resolved]
  - Lupus-like syndrome [Unknown]
  - Antinuclear antibody positive [Unknown]
  - Osteoarthritis [Unknown]
  - Thyroid mass [Unknown]

NARRATIVE: CASE EVENT DATE: 20220201
